FAERS Safety Report 13648569 (Version 2)
Quarter: 2017Q2

REPORT INFORMATION
  Report Type: Spontaneous
  Country: IT (occurrence: IT)
  Receive Date: 20170613
  Receipt Date: 20170615
  Transmission Date: 20170830
  Serious: Yes (Hospitalization, Other)
  Sender: FDA-Public Use
  Company Number: IT-PFIZER INC-2017257001

PATIENT
  Age: 21 Year
  Sex: Female

DRUGS (3)
  1. TAVOR (LORAZEPAM) [Suspect]
     Active Substance: LORAZEPAM
     Dosage: 20 DF, TOTAL
     Route: 048
     Dates: start: 20160406, end: 20160406
  2. DEPAKIN [Suspect]
     Active Substance: VALPROATE SODIUM
     Dosage: 15 DF, TOTAL
     Route: 048
     Dates: start: 20160406, end: 20160406
  3. CITALOPRAM MYLAN [Suspect]
     Active Substance: CITALOPRAM HYDROBROMIDE
     Dosage: 10 DF, TOTAL
     Route: 048
     Dates: start: 20160406, end: 20160406

REACTIONS (3)
  - Drug use disorder [Recovering/Resolving]
  - Sopor [Recovering/Resolving]
  - Intentional self-injury [Unknown]
